FAERS Safety Report 4761263-6 (Version None)
Quarter: 2005Q3

REPORT INFORMATION
  Report Type: 
  Country: None (occurrence: None)
  Receive Date: 20050901
  Receipt Date: 20050802
  Transmission Date: 20060218
  Serious: Yes (Other)
  Sender: FDA-Public Use
  Company Number: 2005JP001335

PATIENT
  Age: 39 Year
  Sex: Female

DRUGS (1)
  1. PROGRAF [Suspect]
     Dates: start: 19990117

REACTIONS (9)
  - ABORTION THREATENED [None]
  - CAESAREAN SECTION [None]
  - COMPLICATION OF PREGNANCY [None]
  - DRUG EXPOSURE DURING PREGNANCY [None]
  - HAEMORRHAGE [None]
  - LABORATORY TEST ABNORMAL [None]
  - PLACENTA PRAEVIA [None]
  - PREGNANCY [None]
  - THREATENED LABOUR [None]
